APPROVED DRUG PRODUCT: DOXORUBICIN HYDROCHLORIDE (LIPOSOMAL)
Active Ingredient: DOXORUBICIN HYDROCHLORIDE
Strength: 50MG/25ML (2MG/ML)
Dosage Form/Route: INJECTABLE, LIPOSOMAL;INJECTION
Application: A212219 | Product #002 | TE Code: AB
Applicant: BAXTER HEALTHCARE CORP
Approved: Oct 19, 2022 | RLD: No | RS: No | Type: RX